FAERS Safety Report 20375937 (Version 1)
Quarter: 2022Q1

REPORT INFORMATION
  Report Type: Report from Study
  Country: US (occurrence: None)
  Receive Date: 20220125
  Receipt Date: 20220125
  Transmission Date: 20220423
  Serious: Yes (Hospitalization, Other)
  Sender: FDA-Public Use
  Company Number: US-ROCHE-2787787

PATIENT
  Age: 44 Year
  Sex: Female
  Weight: 89.7 kg

DRUGS (3)
  1. ATEZOLIZUMAB [Suspect]
     Active Substance: ATEZOLIZUMAB
     Indication: Small cell lung cancer
     Dosage: LAST DOSE ADMINISTERED ON 21/JUL/2020.?STARTED NEXT CYCLE ON 11/AUG/2020 AND 22/SEP/2020
     Route: 041
     Dates: start: 20200630, end: 20200721
  2. CISPLATIN [Suspect]
     Active Substance: CISPLATIN
     Indication: Small cell lung cancer
     Dosage: LAST DOSE ADMINISTERED ON 21/JUL/2020 WAS 125.4 MG.?STARTED NEXT CYCLE ON 11/AUG/2020.
     Route: 042
     Dates: start: 20200630, end: 20200721
  3. ETOPOSIDE [Suspect]
     Active Substance: ETOPOSIDE
     Indication: Small cell lung cancer
     Dosage: LAST DOSE ADMINISTERED ON 21/JUL/2020 AND 23/JUL/2020 WAS 750 MG.?STARTED NEXT CYCLE ON 11/AUG/2020.
     Route: 042
     Dates: start: 20200630, end: 20200723

REACTIONS (6)
  - Nausea [Recovered/Resolved]
  - Vomiting [Recovered/Resolved]
  - Colitis [Recovered/Resolved]
  - Diarrhoea [Recovered/Resolved]
  - Pneumonia [Unknown]
  - Urinary tract infection [Unknown]

NARRATIVE: CASE EVENT DATE: 20200802
